FAERS Safety Report 6044294-8 (Version None)
Quarter: 2009Q1

REPORT INFORMATION
  Report Type: 
  Country: None (occurrence: None)
  Receive Date: 20090120
  Receipt Date: 20080513
  Transmission Date: 20090719
  Serious: No
  Sender: FDA-Public Use
  Company Number: US-BAYER-200811901BCC

PATIENT
  Age: 15 Year
  Sex: Female

DRUGS (1)
  1. MIDOL (FORMULATION NOT SPECIFIED) [Suspect]
     Indication: PAIN
     Route: 048
     Dates: start: 20080512

REACTIONS (3)
  - EUPHORIC MOOD [None]
  - PULSE ABNORMAL [None]
  - TREMOR [None]
